FAERS Safety Report 4826217-X (Version None)
Quarter: 2005Q4

REPORT INFORMATION
  Report Type: 
  Country: None (occurrence: None)
  Receive Date: 20051014
  Receipt Date: 20050719
  Transmission Date: 20060501
  Serious: No
  Sender: FDA-Public Use
  Company Number: 2005SP001951

PATIENT
  Age: 52 Year
  Sex: Male
  Weight: 83.9154 kg

DRUGS (1)
  1. LUNESTA [Suspect]
     Dosage: 2 MG;HS;
     Dates: start: 20050601

REACTIONS (4)
  - AGITATION [None]
  - ANXIETY [None]
  - DRY MOUTH [None]
  - MIDDLE INSOMNIA [None]
